FAERS Safety Report 17569763 (Version 4)
Quarter: 2020Q4

REPORT INFORMATION
  Report Type: Report from Study
  Country: None (occurrence: US)
  Receive Date: 20200323
  Receipt Date: 20201027
  Transmission Date: 20210113
  Serious: Yes (Other)
  Sender: FDA-Public Use
  Company Number: US-ABBVIE-20K-163-3261413-00

PATIENT
  Sex: Female

DRUGS (3)
  1. HUMIRA [Suspect]
     Active Substance: ADALIMUMAB
     Indication: CROHN^S DISEASE
     Route: 058
     Dates: start: 20200216
  2. HUMIRA [Suspect]
     Active Substance: ADALIMUMAB
     Indication: CROHN^S DISEASE
     Dosage: DAY 1
     Route: 058
     Dates: start: 20200119, end: 20200119
  3. HUMIRA [Suspect]
     Active Substance: ADALIMUMAB
     Dosage: DAY 15
     Route: 058
     Dates: start: 20200202, end: 20200202

REACTIONS (19)
  - Joint swelling [Unknown]
  - Headache [Recovered/Resolved]
  - Rectal haemorrhage [Unknown]
  - Arthralgia [Unknown]
  - Fear [Not Recovered/Not Resolved]
  - Insomnia [Recovered/Resolved]
  - Constipation [Recovering/Resolving]
  - Faeces hard [Recovering/Resolving]
  - Occult blood positive [Recovering/Resolving]
  - Vomiting [Unknown]
  - Anaemia [Unknown]
  - Depressed mood [Not Recovered/Not Resolved]
  - Mood swings [Recovered/Resolved]
  - Anxiety [Not Recovered/Not Resolved]
  - Colectomy [Unknown]
  - Hypoaesthesia [Unknown]
  - Nausea [Recovering/Resolving]
  - Immunodeficiency [Not Recovered/Not Resolved]
  - Crohn^s disease [Recovered/Resolved]

NARRATIVE: CASE EVENT DATE: 2020
